FAERS Safety Report 5092399-0 (Version None)
Quarter: 2006Q3

REPORT INFORMATION
  Report Type: 
  Country: None (occurrence: None)
  Receive Date: 20060825
  Receipt Date: 20060816
  Transmission Date: 20061208
  Serious: Yes (Other)
  Sender: FDA-Public Use
  Company Number: 2006-08-1223

PATIENT
  Sex: Female

DRUGS (1)
  1. ALBUTEROL SULFATE AUTOHALER [Suspect]
     Indication: DYSPNOEA
     Dosage: ORAL AER INH
     Route: 055

REACTIONS (13)
  - ASTHENIA [None]
  - CHOKING [None]
  - COUGH [None]
  - DRUG INEFFECTIVE [None]
  - MUSCLE SPASMS [None]
  - NASAL CONGESTION [None]
  - OEDEMA PERIPHERAL [None]
  - ORAL CANDIDIASIS [None]
  - ORAL DISCOMFORT [None]
  - POSTNASAL DRIP [None]
  - STRAWBERRY TONGUE [None]
  - TOOTH LOSS [None]
  - WEIGHT DECREASED [None]
